FAERS Safety Report 21598214 (Version 1)
Quarter: 2022Q4

REPORT INFORMATION
  Report Type: Spontaneous
  Country: US (occurrence: US)
  Receive Date: 20221115
  Receipt Date: 20221115
  Transmission Date: 20230112
  Serious: No
  Sender: FDA-Public Use
  Company Number: US-BIOGEN-2022BI01147638

PATIENT
  Sex: Female

DRUGS (6)
  1. VUMERITY [Suspect]
     Active Substance: DIROXIMEL FUMARATE
     Indication: Multiple sclerosis
     Route: 050
     Dates: start: 20220812
  2. VUMERITY [Suspect]
     Active Substance: DIROXIMEL FUMARATE
     Route: 050
  3. VUMERITY [Suspect]
     Active Substance: DIROXIMEL FUMARATE
     Route: 050
  4. VUMERITY [Suspect]
     Active Substance: DIROXIMEL FUMARATE
     Route: 050
     Dates: start: 20220426
  5. GABAPENTIN [Concomitant]
     Active Substance: GABAPENTIN
     Route: 050
  6. XANAX [Concomitant]
     Active Substance: ALPRAZOLAM
     Route: 050

REACTIONS (8)
  - Abdominal discomfort [Unknown]
  - Somnolence [Unknown]
  - Night sweats [Unknown]
  - Fatigue [Unknown]
  - Cognitive disorder [Unknown]
  - Nausea [Not Recovered/Not Resolved]
  - Abdominal pain upper [Not Recovered/Not Resolved]
  - Flushing [Unknown]

NARRATIVE: CASE EVENT DATE: 20220101
